FAERS Safety Report 19150116 (Version 1)
Quarter: 2021Q2

REPORT INFORMATION
  Report Type: Spontaneous
  Country: IT (occurrence: IT)
  Receive Date: 20210417
  Receipt Date: 20210417
  Transmission Date: 20210717
  Serious: Yes (Other)
  Sender: FDA-Public Use
  Company Number: NVSC2021IT084451

PATIENT
  Age: 54 Year
  Sex: Female
  Weight: 66 kg

DRUGS (2)
  1. PACLITAXEL STRAGEN [Suspect]
     Active Substance: PACLITAXEL
     Indication: BREAST CANCER
     Dosage: 141.8 MG, CYCLIC
     Route: 042
     Dates: start: 20210113
  2. CARBOPLATIN SANDOZ [Suspect]
     Active Substance: CARBOPLATIN
     Indication: BREAST CANCER
     Dosage: 181.2 MG, CYCLIC
     Route: 042
     Dates: start: 20210113

REACTIONS (1)
  - Palmar-plantar erythrodysaesthesia syndrome [Not Recovered/Not Resolved]

NARRATIVE: CASE EVENT DATE: 20210310
